FAERS Safety Report 8173786-0 (Version None)
Quarter: 2012Q1

REPORT INFORMATION
  Report Type: 
  Country: None (occurrence: None)
  Receive Date: 20120229
  Receipt Date: 20120220
  Transmission Date: 20120608
  Serious: Yes (Hospitalization, Other)
  Sender: FDA-Public Use
  Company Number: US-ELI_LILLY_AND_COMPANY-US201202005998

PATIENT
  Age: 74 Year
  Sex: Female

DRUGS (17)
  1. ZOFRAN [Concomitant]
     Dosage: UNK, PRN
  2. TIKOSYN [Concomitant]
  3. BENADRYL [Concomitant]
     Dosage: UNK, PRN
  4. FORTEO [Suspect]
     Dosage: 20 UG, UNK
  5. PRADAXA [Concomitant]
  6. CARDURA [Concomitant]
     Dosage: 4 MG, UNK
  7. SILYMARIN [Concomitant]
  8. ASCORBIC ACID [Concomitant]
  9. ADVAIR DISKUS 100/50 [Concomitant]
     Dosage: UNK, PRN
  10. MORPHINE SULFATE [Concomitant]
     Dosage: 30 MG, UNK
  11. PRILOSEC [Concomitant]
  12. FORTEO [Suspect]
     Dosage: 20 UG, UNK
  13. LORTAB [Concomitant]
     Dosage: UNK, PRN
  14. POTASSIUM CHLORIDE [Concomitant]
     Dosage: 10 MEQ, UNK
  15. DIAZEPAM [Concomitant]
     Dosage: 5 MG, UNK
  16. CALTRATE D                         /00944201/ [Concomitant]
  17. LASIX [Concomitant]
     Dosage: 20 MG, UNK

REACTIONS (5)
  - GASTRIC ANTRAL VASCULAR ECTASIA [None]
  - FATIGUE [None]
  - INJECTION SITE PAIN [None]
  - BLOOD COUNT ABNORMAL [None]
  - ANAEMIA [None]
